FAERS Safety Report 17835512 (Version 1)
Quarter: 2020Q2

REPORT INFORMATION
  Report Type: Spontaneous
  Country: GB (occurrence: GB)
  Receive Date: 20200528
  Receipt Date: 20200528
  Transmission Date: 20200714
  Serious: Yes (Hospitalization, Other)
  Sender: FDA-Public Use
  Company Number: GB-PFIZER INC-2020205386

PATIENT
  Age: 71 Year
  Sex: Male

DRUGS (6)
  1. OFLOXACIN. [Concomitant]
     Active Substance: OFLOXACIN
     Indication: OPEN GLOBE INJURY
     Dosage: UNK
     Route: 061
  2. DEXAMETHASONE. [Concomitant]
     Active Substance: DEXAMETHASONE
     Indication: OPEN GLOBE INJURY
     Dosage: UNK
  3. DEPO-MEDRONE [Suspect]
     Active Substance: METHYLPREDNISOLONE
     Indication: OSTEOPOROSIS
  4. DEPO-MEDRONE [Suspect]
     Active Substance: METHYLPREDNISOLONE
     Indication: CYSTOID MACULAR OEDEMA
     Dosage: 1 ML, (METHYLPREDNISOLONE ACETATE 40 MG/ML)
     Route: 031
  5. CIPROFLOXACIN. [Concomitant]
     Active Substance: CIPROFLOXACIN
     Indication: OPEN GLOBE INJURY
     Dosage: UNK
     Route: 048
  6. ATROPINE. [Concomitant]
     Active Substance: ATROPINE
     Indication: OPEN GLOBE INJURY
     Dosage: UNK

REACTIONS (2)
  - Open globe injury [Recovered/Resolved]
  - Intra-ocular injection complication [Unknown]
